FAERS Safety Report 7978620-7 (Version None)
Quarter: 2011Q4

REPORT INFORMATION
  Report Type: 
  Country: None (occurrence: None)
  Receive Date: 20111206
  Receipt Date: 20111122
  Transmission Date: 20120403
  Serious: Yes (Other)
  Sender: FDA-Public Use
  Company Number: 2011SP054833

PATIENT
  Age: 58 Year
  Sex: Male

DRUGS (4)
  1. RIBAVIRIN [Suspect]
     Indication: ARTHRITIS
     Dosage: 1000 MG;QD;P
     Route: 048
     Dates: start: 20110924
  2. RIBAVIRIN [Suspect]
     Indication: HEPATITIS C
     Dosage: 1000 MG;QD;P
     Route: 048
     Dates: start: 20110924
  3. PEG-INTRON [Suspect]
     Indication: ARTHRITIS
     Dosage: 120 MCG;QW;SC
     Route: 058
     Dates: start: 20110924
  4. PEG-INTRON [Suspect]
     Indication: HEPATITIS C
     Dosage: 120 MCG;QW;SC
     Route: 058
     Dates: start: 20110924

REACTIONS (1)
  - HYPOTHYROIDISM [None]
